FAERS Safety Report 12756527 (Version 1)
Quarter: 2016Q3

REPORT INFORMATION
  Report Type: Spontaneous
  Country: US (occurrence: US)
  Receive Date: 20160917
  Receipt Date: 20160917
  Transmission Date: 20161109
  Serious: No
  Sender: FDA-Public Use
  Company Number: US-ASTRAZENECA-2016SE87144

PATIENT
  Sex: Female
  Weight: 60.8 kg

DRUGS (1)
  1. BRILINTA [Suspect]
     Active Substance: TICAGRELOR
     Indication: STENT PLACEMENT
     Route: 048
     Dates: start: 20160525, end: 201607

REACTIONS (6)
  - Contusion [Unknown]
  - Rash generalised [Unknown]
  - Dizziness [Unknown]
  - Dyspnoea [Unknown]
  - Epistaxis [Unknown]
  - Trichorrhexis [Unknown]
